FAERS Safety Report 20579752 (Version 1)
Quarter: 2022Q1

REPORT INFORMATION
  Report Type: Spontaneous
  Country: DE (occurrence: DE)
  Receive Date: 20220310
  Receipt Date: 20220310
  Transmission Date: 20220424
  Serious: Yes (Other)
  Sender: FDA-Public Use
  Company Number: DE-BRISTOL-MYERS SQUIBB COMPANY-BMS-2022-034612

PATIENT
  Age: 39 Year
  Sex: Female

DRUGS (5)
  1. OPDIVO [Suspect]
     Active Substance: NIVOLUMAB
     Indication: Malignant melanoma
     Dosage: UNAVAILABLE
     Route: 065
     Dates: start: 202009
  2. OPDIVO [Suspect]
     Active Substance: NIVOLUMAB
     Dosage: UNAVAILABLE
     Route: 065
     Dates: start: 202010
  3. OPDIVO [Suspect]
     Active Substance: NIVOLUMAB
     Dosage: UNAVAILABLE
     Route: 065
     Dates: start: 202011
  4. YERVOY [Suspect]
     Active Substance: IPILIMUMAB
     Indication: Malignant melanoma
     Dosage: UNK
     Route: 065
     Dates: start: 202009
  5. YERVOY [Suspect]
     Active Substance: IPILIMUMAB
     Dosage: UNK
     Route: 065
     Dates: start: 202010

REACTIONS (9)
  - Immune-mediated hepatitis [Unknown]
  - Immune-mediated enterocolitis [Unknown]
  - Immune-mediated pancreatitis [Unknown]
  - Uveitis [Unknown]
  - Corneal perforation [Unknown]
  - Retinopathy [Unknown]
  - Optic neuritis [Unknown]
  - Ulcerative keratitis [Unknown]
  - Oedema mucosal [Unknown]

NARRATIVE: CASE EVENT DATE: 20201001
